FAERS Safety Report 8350192-7 (Version None)
Quarter: 2012Q2

REPORT INFORMATION
  Report Type: 
  Country: None (occurrence: None)
  Receive Date: 20120510
  Receipt Date: 20120502
  Transmission Date: 20120825
  Serious: Yes (Hospitalization)
  Sender: FDA-Public Use
  Company Number: US-ROCHE-1065537

PATIENT
  Sex: Female
  Weight: 61.4 kg

DRUGS (6)
  1. DECADRON [Concomitant]
  2. TEMOZOLOMIDE [Suspect]
     Indication: GLIOSARCOMA
     Dosage: LST DOSE PRIOR TO SAE:21/APR/2012
     Route: 048
     Dates: start: 20120207
  3. ONDANSETRON [Concomitant]
  4. AVASTIN [Suspect]
     Indication: GLIOSARCOMA
     Dosage: LAST DOSE PRIOR TO SAE:17/APR/2012
     Route: 042
     Dates: start: 20120207
  5. TEMOZOLOMIDE [Suspect]
     Dosage: CONCOMITANT TEMOZOLOMIDE
     Dates: start: 20110328
  6. TEMOZOLOMIDE [Suspect]
     Dosage: ADJUVANT TEMOZOLOMIDE
     Dates: start: 20110601

REACTIONS (1)
  - STATUS EPILEPTICUS [None]
